FAERS Safety Report 5575779-6 (Version None)
Quarter: 2007Q4

REPORT INFORMATION
  Report Type: 
  Country: None (occurrence: None)
  Receive Date: 20071221
  Receipt Date: 20071212
  Transmission Date: 20080405
  Serious: Yes (Death)
  Sender: FDA-Public Use
  Company Number: S07-FRA-06428-01

PATIENT
  Sex: Female

DRUGS (4)
  1. ESCITALOPRAM [Suspect]
  2. ATARAX [Suspect]
  3. PHENOTHIAZINE [Suspect]
  4. UNSPECIFIED MEDICATIONS [Suspect]

REACTIONS (2)
  - COMPLETED SUICIDE [None]
  - MULTIPLE DRUG OVERDOSE INTENTIONAL [None]
